FAERS Safety Report 4787180-3 (Version None)
Quarter: 2005Q3

REPORT INFORMATION
  Report Type: 
  Country: None (occurrence: None)
  Receive Date: 20050927
  Receipt Date: 20050622
  Transmission Date: 20060218
  Serious: No
  Sender: FDA-Public Use
  Company Number: USA0506101155

PATIENT
  Age: 35 Year
  Sex: Female

DRUGS (3)
  1. STRATTERA [Suspect]
     Indication: ATTENTION DEFICIT/HYPERACTIVITY DISORDER
     Dosage: 120 MG DAY
     Dates: start: 20040901, end: 20050601
  2. LORATADINE [Concomitant]
  3. ALEVE [Concomitant]

REACTIONS (6)
  - ALOPECIA [None]
  - DYSMENORRHOEA [None]
  - DYSURIA [None]
  - HEADACHE [None]
  - MICTURITION DISORDER [None]
  - OVERDOSE [None]
